FAERS Safety Report 6186197-4 (Version None)
Quarter: 2009Q2

REPORT INFORMATION
  Report Type: 
  Country: None (occurrence: None)
  Receive Date: 20090511
  Receipt Date: 20090429
  Transmission Date: 20091009
  Serious: Yes (Hospitalization, Disabling)
  Sender: FDA-Public Use
  Company Number: SE-PFIZER INC-2009167361

PATIENT

DRUGS (5)
  1. ZOLOFT [Suspect]
     Dosage: 50 MG, UNK
  2. TRADOLAN [Suspect]
     Indication: PAIN
     Dosage: UNK
  3. XANOR [Concomitant]
     Dosage: UNK
  4. PARACETAMOL [Concomitant]
     Dosage: UNK
  5. ACETAMINOPHEN W/ CODEINE [Concomitant]
     Dosage: UNK

REACTIONS (2)
  - DISABILITY [None]
  - FIBROMYALGIA [None]
